FAERS Safety Report 4945398-0 (Version None)
Quarter: 2006Q1

REPORT INFORMATION
  Report Type: 
  Country: None (occurrence: None)
  Receive Date: 20060316
  Receipt Date: 20051216
  Transmission Date: 20060701
  Serious: Yes (Other)
  Sender: FDA-Public Use
  Company Number: US-ROCHE-429305

PATIENT
  Sex: Female
  Weight: 2.7 kg

DRUGS (8)
  1. INVIRASE [Suspect]
     Indication: SYSTEMIC ANTIVIRAL TREATMENT
     Dates: start: 20051017
  2. VIREAD [Concomitant]
     Indication: SYSTEMIC ANTIVIRAL TREATMENT
     Dosage: TREATMENT STARTED AT 14 WEEKS GESTATION.  DRUG STOPPED ON 28 FEB 2005 AND RESTARTED AFTER THE DELIV+
  3. EPIVIR [Concomitant]
     Indication: SYSTEMIC ANTIVIRAL TREATMENT
     Dosage: TREATMENT RECEIVED PRIOR TO CONCEPTION UNTIL APPROXIMATELY FOUR WEEKS GESTATION.
     Dates: end: 20050228
  4. KALETRA [Concomitant]
     Indication: SYSTEMIC ANTIVIRAL TREATMENT
     Dosage: DRUG STOPPED ON 28 FEB 2005 AND RESTARTED AFTER THE DELIVERY
  5. TRUVADA [Concomitant]
     Indication: SYSTEMIC ANTIVIRAL TREATMENT
     Dosage: TREATMENT FROM APPROXIMATELY 10 WEEKS GESTATION TO APPROXIMATELY 14 WEEKS.
     Dates: start: 20050406, end: 20050506
  6. COMBIVIR [Concomitant]
     Indication: SYSTEMIC ANTIVIRAL TREATMENT
     Dosage: RECEIVED TREATMENT FROM 14 WEEKS TO JUST PRIOR TO DELIVERY.
     Dates: start: 20050506
  7. TRIZIVIR [Concomitant]
     Indication: SYSTEMIC ANTIVIRAL TREATMENT
     Dosage: TREATMENT STARTED APPROXIMATELY 8 DAYS PRIOR TO DELIVERY.
     Dates: start: 20051011
  8. LOPINAVIR [Concomitant]
     Dosage: RECEIVED TREATMENT PIROR TO CONCEPTION TO APPROXIMATELY 4 WEEKS GESTATION, AND AGAIN FROM APPROXIMA+

REACTIONS (4)
  - CEPHALHAEMATOMA [None]
  - COMPLICATION OF DELIVERY [None]
  - DRUG EXPOSURE DURING PREGNANCY [None]
  - WEIGHT GAIN POOR [None]
